FAERS Safety Report 24624146 (Version 1)
Quarter: 2024Q4

REPORT INFORMATION
  Report Type: Spontaneous
  Country: HR (occurrence: HR)
  Receive Date: 20241115
  Receipt Date: 20241115
  Transmission Date: 20250115
  Serious: Yes (Other)
  Sender: PFIZER
  Company Number: HR-PFIZER INC-PV202400146287

PATIENT
  Age: 57 Year
  Sex: Female

DRUGS (7)
  1. CYTARABINE [Suspect]
     Active Substance: CYTARABINE
     Dosage: UNK, CYCLIC
  2. RITUXIMAB [Suspect]
     Active Substance: RITUXIMAB
     Dosage: UNK, CYCLIC
  3. VINCRISTINE [Suspect]
     Active Substance: VINCRISTINE
     Dosage: UNK, CYCLIC
  4. CYCLOPHOSPHAMIDE [Suspect]
     Active Substance: CYCLOPHOSPHAMIDE
     Dosage: UNK, CYCLIC
  5. DOXORUBICIN [Suspect]
     Active Substance: DOXORUBICIN
     Dosage: UNK, CYCLIC
  6. DEXAMETHASONE [Suspect]
     Active Substance: DEXAMETHASONE
     Dosage: UNK, CYCLIC
  7. METHOTREXATE [Suspect]
     Active Substance: METHOTREXATE
     Dosage: UNK UNK, CYCLIC

REACTIONS (7)
  - Thrombocytopenia [Recovered/Resolved]
  - Transfusion reaction [Recovered/Resolved]
  - Thrombocytopenic purpura [Recovered/Resolved]
  - Febrile neutropenia [Recovered/Resolved]
  - Escherichia bacteraemia [Recovered/Resolved]
  - Subarachnoid haemorrhage [Unknown]
  - Parotitis [Unknown]
